FAERS Safety Report 9524283 (Version 2)
Quarter: 2013Q3

REPORT INFORMATION
  Report Type: Spontaneous
  Country: FR (occurrence: FR)
  Receive Date: 20130916
  Receipt Date: 20130923
  Transmission Date: 20140515
  Serious: No
  Sender: FDA-Public Use
  Company Number: FR-JNJFOC-20130906390

PATIENT
  Age: 78 Year
  Sex: Male
  Weight: 56 kg

DRUGS (2)
  1. DUROGESIC [Suspect]
     Indication: SKIN ULCER
     Route: 062
     Dates: start: 2010
  2. DUROGESIC [Suspect]
     Indication: SKIN ULCER
     Route: 062

REACTIONS (3)
  - Product quality issue [Unknown]
  - Pain [Unknown]
  - Inappropriate schedule of drug administration [Unknown]
